FAERS Safety Report 6339128-8 (Version None)
Quarter: 2009Q3

REPORT INFORMATION
  Report Type: 
  Country: None (occurrence: None)
  Receive Date: 20090903
  Receipt Date: 20090827
  Transmission Date: 20100115
  Serious: Yes (Hospitalization)
  Sender: FDA-Public Use
  Company Number: JP-BRISTOL-MYERS SQUIBB COMPANY-14762579

PATIENT

DRUGS (2)
  1. CETUXIMAB [Suspect]
     Indication: HEAD AND NECK CANCER
     Dosage: STRENGTH = 5MG/ML
     Route: 042
     Dates: start: 20090609
  2. RADIATION THERAPY [Suspect]
     Indication: HEAD AND NECK CANCER

REACTIONS (1)
  - DECREASED APPETITE [None]
